FAERS Safety Report 13050967 (Version 1)
Quarter: 2016Q4

REPORT INFORMATION
  Report Type: Spontaneous
  Country: US (occurrence: US)
  Receive Date: 20161220
  Receipt Date: 20161220
  Transmission Date: 20170207
  Serious: Yes (Hospitalization)
  Sender: FDA-Public Use
  Company Number: None

PATIENT
  Age: 54 Year
  Sex: Male

DRUGS (4)
  1. TACROLIMUS CAP 0.5MG [Suspect]
     Active Substance: TACROLIMUS
     Indication: LIVER TRANSPLANT
  2. SIROLIMUS TAB 1MG [Suspect]
     Active Substance: SIROLIMUS
     Indication: ORGAN TRANSPLANT
  3. SIROLIMUS TAB 1MG [Suspect]
     Active Substance: SIROLIMUS
     Indication: LIVER TRANSPLANT
  4. TACROLIMUS CAP 0.5MG [Suspect]
     Active Substance: TACROLIMUS
     Indication: ORGAN TRANSPLANT

REACTIONS (1)
  - Incisional hernia [None]

NARRATIVE: CASE EVENT DATE: 20161215
